FAERS Safety Report 19318372 (Version 1)
Quarter: 2021Q2

REPORT INFORMATION
  Report Type: Spontaneous
  Country: TR (occurrence: TR)
  Receive Date: 20210527
  Receipt Date: 20210527
  Transmission Date: 20210717
  Serious: Yes (Other)
  Sender: FDA-Public Use
  Company Number: TR-JNJFOC-20210538570

PATIENT
  Age: 21 Year
  Sex: Male

DRUGS (1)
  1. ZAVESCA [Suspect]
     Active Substance: MIGLUSTAT
     Indication: RENAL FAILURE
     Route: 065

REACTIONS (7)
  - Kidney transplant rejection [Unknown]
  - Product use in unapproved indication [Unknown]
  - Vomiting [Unknown]
  - Off label use [Unknown]
  - General physical health deterioration [Unknown]
  - Diarrhoea [Unknown]
  - Nausea [Unknown]
